FAERS Safety Report 20628067 (Version 1)
Quarter: 2022Q1

REPORT INFORMATION
  Report Type: Spontaneous
  Country: US (occurrence: US)
  Receive Date: 20220323
  Receipt Date: 20220323
  Transmission Date: 20220423
  Serious: No
  Sender: FDA-Public Use
  Company Number: US-BIOGEN-2021BI01077969

PATIENT
  Sex: Female

DRUGS (5)
  1. VUMERITY [Suspect]
     Active Substance: DIROXIMEL FUMARATE
     Indication: Multiple sclerosis
     Route: 048
     Dates: start: 20201212, end: 20201218
  2. VUMERITY [Suspect]
     Active Substance: DIROXIMEL FUMARATE
     Route: 048
     Dates: start: 20201219
  3. VUMERITY [Suspect]
     Active Substance: DIROXIMEL FUMARATE
     Route: 065
     Dates: start: 20210107
  4. TECFIDERA [Suspect]
     Active Substance: DIMETHYL FUMARATE
     Indication: Multiple sclerosis
     Route: 065
     Dates: start: 20140729
  5. TECFIDERA [Suspect]
     Active Substance: DIMETHYL FUMARATE
     Route: 065

REACTIONS (1)
  - White blood cell count decreased [Not Recovered/Not Resolved]
